FAERS Safety Report 14274427 (Version 2)
Quarter: 2018Q1

REPORT INFORMATION
  Report Type: Report from Study
  Country: None (occurrence: DE)
  Receive Date: 20171211
  Receipt Date: 20180119
  Transmission Date: 20180508
  Serious: Yes (Hospitalization, Other)
  Sender: FDA-Public Use
  Company Number: DE-ABBVIE-17K-062-2187914-00

PATIENT
  Age: 71 Year
  Sex: Male

DRUGS (1)
  1. DUODOPA [Suspect]
     Active Substance: CARBIDOPA\LEVODOPA
     Indication: PARKINSON^S DISEASE
     Dosage: MD 7.5 ML, CRD 4.5 ML/H; ED 4.5 ML
     Route: 050
     Dates: start: 20170308, end: 20171205

REACTIONS (5)
  - Bezoar [Unknown]
  - Intestinal perforation [Unknown]
  - Drug effect decreased [Unknown]
  - Device dislocation [Unknown]
  - Duodenal ulcer perforation [Unknown]

NARRATIVE: CASE EVENT DATE: 201712
